FAERS Safety Report 4386169-6 (Version None)
Quarter: 2004Q2

REPORT INFORMATION
  Report Type: 
  Country: None (occurrence: None)
  Receive Date: 20040629
  Receipt Date: 20040618
  Transmission Date: 20050107
  Serious: Yes (Other)
  Sender: FDA-Public Use
  Company Number: PHEH2004US06711

PATIENT
  Sex: Female

DRUGS (1)
  1. MIACALCIN [Suspect]
     Dosage: 1 SPRAY

REACTIONS (3)
  - CARDIAC PACEMAKER INSERTION [None]
  - EPISTAXIS [None]
  - RHINORRHOEA [None]
